FAERS Safety Report 16192177 (Version 3)
Quarter: 2020Q1

REPORT INFORMATION
  Report Type: Report from Study
  Country: ZA (occurrence: ZA)
  Receive Date: 20190412
  Receipt Date: 20200330
  Transmission Date: 20200409
  Serious: Yes (Death, Hospitalization, Other)
  Sender: FDA-Public Use
  Company Number: PHHY2019ZA080553

PATIENT
  Sex: Male

DRUGS (1)
  1. TUVIGIN [Suspect]
     Active Substance: FINGOLIMOD HYDROCHLORIDE
     Indication: RELAPSING-REMITTING MULTIPLE SCLEROSIS
     Dosage: 0.5 MG, QD
     Route: 048
     Dates: start: 201804

REACTIONS (4)
  - Multiple sclerosis [Unknown]
  - Death [Fatal]
  - General physical health deterioration [Unknown]
  - Secondary progressive multiple sclerosis [Unknown]
